FAERS Safety Report 4332821-8 (Version None)
Quarter: 2004Q1

REPORT INFORMATION
  Report Type: 
  Country: None (occurrence: None)
  Receive Date: 20040330
  Receipt Date: 20040202
  Transmission Date: 20041129
  Serious: No
  Sender: FDA-Public Use
  Company Number: 2004-112601-NL

PATIENT
  Age: 50 Year
  Sex: Male

DRUGS (5)
  1. ROCURONIUM BROMIDE [Suspect]
     Indication: MUSCLE RELAXANT THERAPY
     Dosage: DF
     Route: 042
  2. PROPOFOL [Suspect]
     Indication: ANAESTHESIA
     Dosage: DF
     Route: 042
  3. FENTANYL [Suspect]
     Indication: ANALGESIC EFFECT
     Dosage: DF
     Route: 042
  4. ISOFLURANE [Suspect]
     Indication: ANAESTHESIA
     Dosage: DF
  5. METARAMINOL [Concomitant]

REACTIONS (1)
  - HYPERTHERMIA MALIGNANT [None]
